FAERS Safety Report 19689198 (Version 2)
Quarter: 2021Q3

REPORT INFORMATION
  Report Type: Report from Study
  Country: US (occurrence: US)
  Receive Date: 20210811
  Receipt Date: 20210825
  Transmission Date: 20211014
  Serious: Yes (Hospitalization)
  Sender: FDA-Public Use
  Company Number: NVSC2021US176266

PATIENT
  Sex: Female
  Weight: 14.51 kg

DRUGS (1)
  1. TREPROSTINIL. [Suspect]
     Active Substance: TREPROSTINIL
     Indication: PULMONARY ARTERIAL HYPERTENSION
     Dosage: UNK, CONT ((100 NG/KG/MIN))
     Route: 058

REACTIONS (2)
  - Infusion site erythema [Unknown]
  - Injection site pain [Unknown]
